FAERS Safety Report 5726777-0 (Version None)
Quarter: 2008Q2

REPORT INFORMATION
  Report Type: 
  Country: None (occurrence: None)
  Receive Date: 20080502
  Receipt Date: 20080428
  Transmission Date: 20081010
  Serious: Yes (Hospitalization)
  Sender: FDA-Public Use
  Company Number: JP-BRISTOL-MYERS SQUIBB COMPANY-14078836

PATIENT
  Age: 50 Year
  Sex: Female

DRUGS (4)
  1. BLEO [Suspect]
     Indication: HODGKIN'S DISEASE
     Dosage: ROUTE OF ADMINISTRATION IS GIVEN AS DR. 03DEC07 12MG, 17DEC07 12MG, 28JAN07 15MG.
     Dates: start: 20080128
  2. EXAL [Suspect]
     Indication: HODGKIN'S DISEASE
     Dosage: ROUTE OF ADMINISTRATION IS GIVEN AS DR. 1 DOSAGE FORM = 7.2-9 MG
     Dates: start: 20071203, end: 20080409
  3. ADRIAMYCIN PFS [Suspect]
     Indication: HODGKIN'S DISEASE
     Dosage: ROUTE OF ADMINISTRATION IS TAKEN AS DR. 1 DOSAGE FORM = 30.4-38 MG
     Dates: start: 20071203, end: 20080409
  4. DACARBAZINE [Suspect]
     Indication: HODGKIN'S DISEASE
     Dosage: ROUTE OF ADMINISTRATION IS TAKEN AS DR. ALSO GIVEN ON 03DEC07, 17DEC07.
     Dates: start: 20080128

REACTIONS (2)
  - PLATELET COUNT DECREASED [None]
  - PYREXIA [None]
